FAERS Safety Report 12544889 (Version 1)
Quarter: 2016Q3

REPORT INFORMATION
  Report Type: Spontaneous
  Country: BR (occurrence: BR)
  Receive Date: 20160711
  Receipt Date: 20160711
  Transmission Date: 20161109
  Serious: Yes (Other)
  Sender: FDA-Public Use
  Company Number: BR-BAYER-2016-134244

PATIENT
  Sex: Female
  Weight: 71 kg

DRUGS (4)
  1. ASPIRINA PREVENT [Suspect]
     Active Substance: ASPIRIN
     Indication: ANTICOAGULANT THERAPY
     Dosage: 1 DF, QD
     Route: 048
     Dates: start: 201603
  2. PLAVIX [Concomitant]
     Active Substance: CLOPIDOGREL BISULFATE
     Indication: ANTICOAGULANT THERAPY
     Dosage: 1 DF, QD
     Route: 048
     Dates: start: 201603
  3. FORXIGA [Concomitant]
     Active Substance: DAPAGLIFLOZIN
     Indication: BLOOD GLUCOSE
     Dosage: 1 DF, QD
     Route: 048
     Dates: start: 2015
  4. GALVUS [Concomitant]
     Active Substance: VILDAGLIPTIN
     Dosage: 2 DF, QD
     Route: 048
     Dates: start: 2012

REACTIONS (1)
  - Myocardial infarction [None]
